FAERS Safety Report 25451559 (Version 2)
Quarter: 2025Q4

REPORT INFORMATION
  Report Type: Report from Study
  Country: US (occurrence: US)
  Receive Date: 20250618
  Receipt Date: 20251009
  Transmission Date: 20260119
  Serious: No
  Sender: AVERITAS
  Company Number: US-GRUNENTHAL-2025-107494

PATIENT
  Age: 60 Year
  Sex: Male

DRUGS (2)
  1. CAPSAICIN [Suspect]
     Active Substance: CAPSAICIN
     Indication: Diabetic neuropathy
     Dosage: 4 DOSAGE FORM, ONCE
     Route: 061
     Dates: start: 20250422, end: 20250422
  2. CAPSAICIN [Suspect]
     Active Substance: CAPSAICIN
     Dosage: 4 DOSAGE FORM, ONCE
     Route: 061
     Dates: start: 20250716, end: 20250716

REACTIONS (3)
  - Rash macular [Unknown]
  - Application site erythema [Unknown]
  - Hyperkeratosis [Not Recovered/Not Resolved]

NARRATIVE: CASE EVENT DATE: 20250515
